FAERS Safety Report 8397844-0 (Version None)
Quarter: 2012Q2

REPORT INFORMATION
  Report Type: 
  Country: None (occurrence: None)
  Receive Date: 20120531
  Receipt Date: 20120522
  Transmission Date: 20120825
  Serious: Yes (Hospitalization, Other)
  Sender: FDA-Public Use
  Company Number: PHFR2012GB001755

PATIENT
  Sex: Female

DRUGS (8)
  1. AMITRIPTYLINE HCL [Concomitant]
     Indication: DEPRESSION
     Dosage: 150 MG, DAILY
     Route: 048
     Dates: start: 20100101
  2. LEVOTHYROXINE SODIUM [Concomitant]
     Dosage: 125 MG, DAILY
     Route: 048
     Dates: start: 20100101
  3. CLOZARIL [Suspect]
     Indication: SCHIZOPHRENIA
     Route: 048
     Dates: start: 20040803
  4. VALPROATE SODIUM [Concomitant]
     Indication: DEPRESSION
     Dosage: 200 MG, DAILY
     Dates: start: 20100101
  5. SIMVASTATIN [Concomitant]
     Dosage: 125 MG, DAILY
     Route: 048
     Dates: start: 20100101
  6. CLOZARIL [Suspect]
     Dosage: 350 MG, DAILY
     Route: 048
     Dates: start: 20120313
  7. CLOZARIL [Suspect]
     Dosage: 600 MG, DAILY
     Route: 048
     Dates: start: 20100101
  8. PROCYCLIDINE HYDROCHLORIDE 2MG TAB [Concomitant]
     Dosage: 10 UKN, UNK
     Route: 048
     Dates: start: 20100101

REACTIONS (5)
  - CHOLECYSTITIS INFECTIVE [None]
  - MYOCLONUS [None]
  - ENDOCARDITIS [None]
  - PYREXIA [None]
  - CHEST PAIN [None]
